FAERS Safety Report 12970038 (Version 1)
Quarter: 2016Q4

REPORT INFORMATION
  Report Type: Report from Study
  Country: JP (occurrence: JP)
  Receive Date: 20161123
  Receipt Date: 20161123
  Transmission Date: 20170207
  Serious: Yes (Other)
  Sender: FDA-Public Use
  Company Number: JP-PFIZER INC-2016543686

PATIENT

DRUGS (1)
  1. IRINOTECAN HCL [Suspect]
     Active Substance: IRINOTECAN HYDROCHLORIDE
     Indication: HEPATOBLASTOMA
     Dosage: 20 MG/M2 PER DAY FROM DAY 1 TO 5, 8 TO 12, EVERY 21 DAYS

REACTIONS (2)
  - Infection reactivation [Recovered/Resolved]
  - Neutropenia [Unknown]
